FAERS Safety Report 14370545 (Version 2)
Quarter: 2018Q1

REPORT INFORMATION
  Report Type: Spontaneous
  Country: US (occurrence: US)
  Receive Date: 20180110
  Receipt Date: 20180228
  Transmission Date: 20180509
  Serious: No
  Sender: FDA-Public Use
  Company Number: US-PFIZER INC-2018007732

PATIENT
  Age: 61 Year
  Sex: Female

DRUGS (4)
  1. JAKAFI [Concomitant]
     Active Substance: RUXOLITINIB
     Indication: DISCOMFORT
  2. VIAGRA [Suspect]
     Active Substance: SILDENAFIL CITRATE
     Indication: GRAFT VERSUS HOST DISEASE
     Dosage: 100 MG, UNK
     Dates: start: 201801
  3. JAKAFI [Concomitant]
     Active Substance: RUXOLITINIB
     Indication: PAIN
     Dosage: UNK
  4. VIAGRA [Suspect]
     Active Substance: SILDENAFIL CITRATE
     Indication: RAYNAUD^S PHENOMENON

REACTIONS (2)
  - Product use in unapproved indication [Unknown]
  - Product use issue [Unknown]

NARRATIVE: CASE EVENT DATE: 201801
